FAERS Safety Report 4299124-1 (Version None)
Quarter: 2004Q1

REPORT INFORMATION
  Report Type: 
  Country: None (occurrence: None)
  Receive Date: 20040217
  Receipt Date: 20040202
  Transmission Date: 20041129
  Serious: Yes (Hospitalization)
  Sender: FDA-Public Use
  Company Number: K200400130

PATIENT
  Age: 77 Year
  Sex: Female

DRUGS (9)
  1. ALTACE [Suspect]
     Indication: HYPERTENSION
     Dosage: 2.5 MG, QD, ORAL
     Route: 048
     Dates: end: 20040108
  2. XANAX [Suspect]
     Dosage: 0.25 MG, QD, ORAL
     Route: 048
     Dates: end: 20040108
  3. CIFLOX (CIPROFLOXACIN) TABLET, 750MG [Suspect]
     Dosage: 750 MG, BID, ORAL
     Route: 048
     Dates: start: 20031230, end: 20040108
  4. ROCEPHIN [Suspect]
     Dates: start: 20031230
  5. NITRODERM [Concomitant]
  6. CO-EFFERALGAN (PARACETAMOL, CODEINE PHOSPHATE) [Concomitant]
  7. ASPEGIC 1000 [Concomitant]
  8. CLONAZEPAM [Concomitant]
  9. UMULINE PROTAMINE ISOPHANE (ISOPHANE INSULIN) [Concomitant]

REACTIONS (3)
  - ACUTE PULMONARY OEDEMA [None]
  - AGRANULOCYTOSIS [None]
  - SUPERINFECTION LUNG [None]
